FAERS Safety Report 4448148-X (Version None)
Quarter: 2004Q3

REPORT INFORMATION
  Report Type: 
  Country: None (occurrence: None)
  Receive Date: 20040812
  Receipt Date: 20040618
  Transmission Date: 20050211
  Serious: No
  Sender: FDA-Public Use
  Company Number: USA040670472

PATIENT
  Age: 74 Year
  Sex: Male
  Weight: 89 kg

DRUGS (6)
  1. CIALIS [Suspect]
     Indication: ERECTILE DYSFUNCTION
     Dosage: 20 MG
     Dates: start: 20040601
  2. DIOVAN [Concomitant]
  3. PRINIVIL [Concomitant]
  4. ATENOLOL [Concomitant]
  5. HYDROCHLOROTHIAZID [Concomitant]
  6. ANDROGEL [Concomitant]

REACTIONS (1)
  - DRUG INEFFECTIVE [None]
